FAERS Safety Report 12344422 (Version 2)
Quarter: 2020Q3

REPORT INFORMATION
  Report Type: Spontaneous
  Country: US (occurrence: US)
  Receive Date: 20160507
  Receipt Date: 20200706
  Transmission Date: 20201102
  Serious: Yes (Death, Hospitalization)
  Sender: FDA-Public Use
  Company Number: US-JNJFOC-20160404112

PATIENT
  Age: 64 Year
  Sex: Female

DRUGS (2)
  1. XARELTO [Suspect]
     Active Substance: RIVAROXABAN
     Indication: PULMONARY EMBOLISM
     Route: 048
     Dates: start: 20150611, end: 20150625
  2. ASPRIN [Suspect]
     Active Substance: ASPIRIN
     Indication: CORONARY ARTERY DISEASE
     Route: 065
     Dates: end: 20150625

REACTIONS (1)
  - Gastrointestinal haemorrhage [Recovering/Resolving]

NARRATIVE: CASE EVENT DATE: 20150622
